FAERS Safety Report 8846986 (Version 2)
Quarter: 2012Q4

REPORT INFORMATION
  Report Type: 
  Country: US (occurrence: US)
  Receive Date: 20121018
  Receipt Date: 20121108
  Transmission Date: 20130627
  Serious: No
  Sender: FDA-Public Use
  Company Number: US-PFIZER INC-2012257123

PATIENT
  Age: 55 Year
  Sex: Male
  Weight: 68 kg

DRUGS (4)
  1. ADVIL [Suspect]
     Indication: MUSCLE PAIN
     Dosage: 200 mg, 3x/day
     Route: 048
     Dates: start: 20121010
  2. PRAVASTATIN [Concomitant]
     Indication: HIGH CHOLESTEROL
     Dosage: UNK
  3. ASPIRIN [Concomitant]
     Indication: HIGH CHOLESTEROL
     Dosage: UNK
  4. COMBIVENT [Concomitant]
     Indication: ASTHMA
     Dosage: UNK

REACTIONS (1)
  - Rash erythematous [Not Recovered/Not Resolved]
